FAERS Safety Report 10347917 (Version 1)
Quarter: 2014Q3

REPORT INFORMATION
  Report Type: Spontaneous
  Country: JP (occurrence: JP)
  Receive Date: 20140729
  Receipt Date: 20140729
  Transmission Date: 20150326
  Serious: No
  Sender: FDA-Public Use
  Company Number: PHHY2013JP159015

PATIENT
  Age: 34 Year
  Sex: Male

DRUGS (2)
  1. DASATINIB [Concomitant]
     Active Substance: DASATINIB
  2. TASIGNA [Suspect]
     Active Substance: NILOTINIB
     Indication: CHRONIC MYELOID LEUKAEMIA
     Dosage: 800 MG, DAILY
     Dates: start: 20131009

REACTIONS (1)
  - Rash [Unknown]

NARRATIVE: CASE EVENT DATE: 20131122
